FAERS Safety Report 19008222 (Version 1)
Quarter: 2021Q1

REPORT INFORMATION
  Report Type: Spontaneous
  Country: FR (occurrence: FR)
  Receive Date: 20210315
  Receipt Date: 20210315
  Transmission Date: 20210420
  Serious: Yes (Other)
  Sender: FDA-Public Use
  Company Number: FR-ACCORD-219279

PATIENT
  Age: 56 Year
  Sex: Female
  Weight: 83 kg

DRUGS (8)
  1. MAGNE B6 [Concomitant]
     Active Substance: MAGNESIUM\PYRIDOXINE
  2. INEXIUM [Concomitant]
     Active Substance: ESOMEPRAZOLE
  3. PACLITAXEL ACCORD [Concomitant]
     Active Substance: PACLITAXEL
     Dosage: 6 MG / ML CONCENTRATE FOR SOLUTION FOR INFUSION
     Route: 042
  4. AVASTIN [Concomitant]
     Active Substance: BEVACIZUMAB
  5. CARBOPLATIN ACCORD [Suspect]
     Active Substance: CARBOPLATIN
     Indication: ADENOCARCINOMA
     Dosage: 10 MG / ML, SOLUTION FOR INFUSION
     Route: 042
     Dates: start: 20190204, end: 20210120
  6. CISPLATIN MYLAN [Suspect]
     Active Substance: CISPLATIN
     Indication: ADENOCARCINOMA
     Dosage: 50 MG / 100 ML, SOLUTION FOR INFUSION IN A VIAL
     Route: 042
     Dates: start: 20210106, end: 20210106
  7. LEXOMIL [Concomitant]
     Active Substance: BROMAZEPAM
  8. LERCAPRESS [Concomitant]
     Dosage: 20 MG / 20 MG FILM?COATED TABLETS

REACTIONS (2)
  - Drug hypersensitivity [Recovered/Resolved]
  - Anaphylactic shock [Recovered/Resolved]

NARRATIVE: CASE EVENT DATE: 202010
